FAERS Safety Report 6673321-X (Version None)
Quarter: 2010Q2

REPORT INFORMATION
  Report Type: 
  Country: None (occurrence: None)
  Receive Date: 20100408
  Receipt Date: 20100402
  Transmission Date: 20101027
  Serious: Yes (Hospitalization)
  Sender: FDA-Public Use
  Company Number: JP-GENENTECH-300089

PATIENT
  Age: 61 Year
  Sex: Female

DRUGS (7)
  1. RITUXAN [Suspect]
     Indication: B-CELL LYMPHOMA
     Dosage: 250 MG/M2, UNK
     Route: 042
     Dates: start: 20091209
  2. ZEVALIN [Suspect]
     Indication: B-CELL LYMPHOMA
     Dosage: 130 MBQ, UNK
     Route: 042
     Dates: start: 20091209
  3. ZEVALIN [Suspect]
     Dosage: 11.1 UNK, UNK
     Route: 042
     Dates: start: 20091216
  4. MAGMITT [Concomitant]
     Indication: CONSTIPATION
     Dosage: 1980 MG, QD
     Route: 048
     Dates: start: 20091211, end: 20091217
  5. COTRIM [Concomitant]
     Indication: INFECTION PROPHYLAXIS
     Dosage: 1 TABLET, QD
     Route: 048
     Dates: start: 20091207, end: 20091220
  6. ALLOPURINOL [Concomitant]
     Indication: PROPHYLAXIS
     Dosage: 200 MG, QD
     Route: 048
     Dates: start: 20091214, end: 20091218
  7. FAMOTIDINE [Concomitant]
     Indication: PROPHYLAXIS
     Dosage: 200 MG, QD
     Route: 048
     Dates: start: 20091214, end: 20091218

REACTIONS (5)
  - INFLAMMATION [None]
  - LEUKOPENIA [None]
  - NEUTROPENIA [None]
  - RESPIRATORY TRACT INFLAMMATION [None]
  - THROMBOCYTOPENIA [None]
